FAERS Safety Report 13287663 (Version 2)
Quarter: 2017Q2

REPORT INFORMATION
  Report Type: Report from Study
  Country: BG (occurrence: BG)
  Receive Date: 20170302
  Receipt Date: 20170403
  Transmission Date: 20170830
  Serious: Yes (Other)
  Sender: FDA-Public Use
  Company Number: BG-AMGEN-BGRSL2017026101

PATIENT
  Age: 58 Year
  Sex: Female
  Weight: 55 kg

DRUGS (1)
  1. VECTIBIX [Suspect]
     Active Substance: PANITUMUMAB
     Indication: COLORECTAL CANCER METASTATIC
     Dosage: 330 MG, 2 TIMES MONTHLY
     Route: 042
     Dates: start: 20161214

REACTIONS (2)
  - Ulcer haemorrhage [Recovered/Resolved]
  - Nasal mucosal ulcer [Recovering/Resolving]

NARRATIVE: CASE EVENT DATE: 20161214
